FAERS Safety Report 21219498 (Version 5)
Quarter: 2024Q4

REPORT INFORMATION
  Report Type: Spontaneous
  Country: DE (occurrence: DE)
  Receive Date: 20220817
  Receipt Date: 20241017
  Transmission Date: 20250115
  Serious: Yes (Death, Other)
  Sender: AUROBINDO
  Company Number: DE-OTSUKA-2022_037184

PATIENT
  Age: 63 Year
  Sex: Male

DRUGS (13)
  1. FLUDARABINE [Suspect]
     Active Substance: FLUDARABINE PHOSPHATE
     Indication: Acute myeloid leukaemia
     Dosage: UNK
     Route: 065
  2. FLUDARABINE [Suspect]
     Active Substance: FLUDARABINE PHOSPHATE
     Indication: Allogenic stem cell transplantation
  3. MELPHALAN [Suspect]
     Active Substance: MELPHALAN
     Indication: Acute myeloid leukaemia
     Dosage: UNK
     Route: 065
  4. BUSULFAN [Suspect]
     Active Substance: BUSULFAN
     Indication: Acute myeloid leukaemia
     Dosage: UNK
     Route: 065
  5. CYCLOPHOSPHAMIDE [Suspect]
     Active Substance: CYCLOPHOSPHAMIDE
     Indication: Prophylaxis against graft versus host disease
     Dosage: UNK
     Route: 065
  6. MYCOPHENOLATE MOFETIL [Suspect]
     Active Substance: MYCOPHENOLATE MOFETIL
     Indication: Prophylaxis against graft versus host disease
     Dosage: UNK
     Route: 065
  7. TACROLIMUS [Suspect]
     Active Substance: TACROLIMUS
     Indication: Prophylaxis against graft versus host disease
     Dosage: UNK
     Route: 065
  8. THIOTEPA [Suspect]
     Active Substance: THIOTEPA
     Indication: Acute myeloid leukaemia
     Dosage: UNK
     Route: 065
  9. THIOTEPA [Suspect]
     Active Substance: THIOTEPA
     Indication: Allogenic stem cell transplantation
  10. TREOSULFAN [Suspect]
     Active Substance: TREOSULFAN
     Indication: Acute myeloid leukaemia
     Dosage: UNK
     Route: 065
  11. URSODIOL [Suspect]
     Active Substance: URSODIOL
     Indication: Acute myeloid leukaemia
     Dosage: UNK
     Route: 065
  12. AZACITIDINE [Concomitant]
     Active Substance: AZACITIDINE
     Indication: Acute myeloid leukaemia
     Dosage: UNK
     Route: 065
  13. VENETOCLAX [Concomitant]
     Active Substance: VENETOCLAX
     Indication: Acute myeloid leukaemia
     Dosage: UNK
     Route: 065

REACTIONS (4)
  - Hepatic failure [Fatal]
  - Ascites [Unknown]
  - Pericardial effusion [Unknown]
  - Product use in unapproved indication [Unknown]
